FAERS Safety Report 17026959 (Version 1)
Quarter: 2019Q4

REPORT INFORMATION
  Report Type: Spontaneous
  Country: US (occurrence: US)
  Receive Date: 20191112
  Receipt Date: 20191112
  Transmission Date: 20200122
  Serious: No
  Sender: FDA-Public Use
  Company Number: None

PATIENT
  Age: 14 Day
  Sex: Female
  Weight: 3.15 kg

DRUGS (2)
  1. RANITIDINE SYRUP 15MG/ML [Suspect]
     Active Substance: RANITIDINE
  2. RATINIDINE [Concomitant]

REACTIONS (2)
  - Vomiting [None]
  - Rash [None]

NARRATIVE: CASE EVENT DATE: 20190412
